FAERS Safety Report 4520010-3 (Version None)
Quarter: 2004Q4

REPORT INFORMATION
  Report Type: 
  Country: None (occurrence: None)
  Receive Date: 20041201
  Receipt Date: 20041201
  Transmission Date: 20050328
  Serious: No
  Sender: FDA-Public Use
  Company Number: None

PATIENT
  Age: 57 Year
  Sex: Male
  Weight: 112 kg

DRUGS (3)
  1. VANCOMYCIN [Suspect]
  2. METHOCARBAMOL [Concomitant]
  3. RANITIDINE [Concomitant]

REACTIONS (1)
  - NEUTROPENIA [None]
